FAERS Safety Report 25478051 (Version 1)
Quarter: 2025Q2

REPORT INFORMATION
  Report Type: Spontaneous
  Country: IN (occurrence: IN)
  Receive Date: 20250625
  Receipt Date: 20250625
  Transmission Date: 20250717
  Serious: Yes (Hospitalization, Congenital Anomaly)
  Sender: MYLAN
  Company Number: IN-MYLANLABS-2025M1053287

PATIENT

DRUGS (24)
  1. DOXORUBICIN [Suspect]
     Active Substance: DOXORUBICIN
     Indication: Triple negative breast cancer
  2. DOXORUBICIN [Suspect]
     Active Substance: DOXORUBICIN
     Indication: Invasive ductal breast carcinoma
  3. DOXORUBICIN [Suspect]
     Active Substance: DOXORUBICIN
     Indication: Metastases to liver
     Route: 064
  4. DOXORUBICIN [Suspect]
     Active Substance: DOXORUBICIN
     Route: 064
  5. DOXORUBICIN [Suspect]
     Active Substance: DOXORUBICIN
  6. DOXORUBICIN [Suspect]
     Active Substance: DOXORUBICIN
  7. DOXORUBICIN [Suspect]
     Active Substance: DOXORUBICIN
     Route: 064
  8. DOXORUBICIN [Suspect]
     Active Substance: DOXORUBICIN
     Route: 064
  9. DOCETAXEL [Suspect]
     Active Substance: DOCETAXEL
     Indication: Triple negative breast cancer
  10. DOCETAXEL [Suspect]
     Active Substance: DOCETAXEL
     Indication: Invasive ductal breast carcinoma
  11. DOCETAXEL [Suspect]
     Active Substance: DOCETAXEL
     Indication: Metastases to liver
     Route: 064
  12. DOCETAXEL [Suspect]
     Active Substance: DOCETAXEL
     Route: 064
  13. DOCETAXEL [Suspect]
     Active Substance: DOCETAXEL
  14. DOCETAXEL [Suspect]
     Active Substance: DOCETAXEL
  15. DOCETAXEL [Suspect]
     Active Substance: DOCETAXEL
     Route: 064
  16. DOCETAXEL [Suspect]
     Active Substance: DOCETAXEL
     Route: 064
  17. CYCLOPHOSPHAMIDE [Suspect]
     Active Substance: CYCLOPHOSPHAMIDE
     Indication: Triple negative breast cancer
  18. CYCLOPHOSPHAMIDE [Suspect]
     Active Substance: CYCLOPHOSPHAMIDE
     Indication: Invasive ductal breast carcinoma
  19. CYCLOPHOSPHAMIDE [Suspect]
     Active Substance: CYCLOPHOSPHAMIDE
     Indication: Metastases to liver
     Route: 064
  20. CYCLOPHOSPHAMIDE [Suspect]
     Active Substance: CYCLOPHOSPHAMIDE
     Route: 064
  21. CYCLOPHOSPHAMIDE [Suspect]
     Active Substance: CYCLOPHOSPHAMIDE
  22. CYCLOPHOSPHAMIDE [Suspect]
     Active Substance: CYCLOPHOSPHAMIDE
  23. CYCLOPHOSPHAMIDE [Suspect]
     Active Substance: CYCLOPHOSPHAMIDE
     Route: 064
  24. CYCLOPHOSPHAMIDE [Suspect]
     Active Substance: CYCLOPHOSPHAMIDE
     Route: 064

REACTIONS (5)
  - Septum pellucidum agenesis [Unknown]
  - Congenital central nervous system anomaly [Unknown]
  - Bone disorder [Unknown]
  - Congenital anomaly [Unknown]
  - Foetal exposure during pregnancy [Unknown]
